FAERS Safety Report 8574137-X (Version None)
Quarter: 2012Q3

REPORT INFORMATION
  Report Type: 
  Country: None (occurrence: None)
  Receive Date: 20120806
  Receipt Date: 20120726
  Transmission Date: 20120928
  Serious: Yes (Other)
  Sender: FDA-Public Use
  Company Number: US-ASTRAZENECA-2012SE54732

PATIENT

DRUGS (2)
  1. BRILINTA [Suspect]
     Route: 048
  2. REOPRO [Concomitant]

REACTIONS (1)
  - CEREBRAL HAEMORRHAGE [None]
